FAERS Safety Report 9909181 (Version 3)
Quarter: 2014Q1

REPORT INFORMATION
  Report Type: Spontaneous
  Country: US (occurrence: US)
  Receive Date: 20140219
  Receipt Date: 20140305
  Transmission Date: 20141002
  Serious: Yes (Hospitalization)
  Sender: FDA-Public Use
  Company Number: US-JNJFOC-20140206959

PATIENT
  Age: 54 Year
  Sex: Male
  Weight: 92.08 kg

DRUGS (11)
  1. XARELTO [Suspect]
     Indication: CEREBROVASCULAR ACCIDENT PROPHYLAXIS
     Route: 048
     Dates: start: 20120828
  2. XARELTO [Suspect]
     Indication: ATRIAL FIBRILLATION
     Route: 048
     Dates: start: 20120828
  3. AMIODARONE [Concomitant]
     Route: 065
  4. CIPRO [Concomitant]
     Route: 065
  5. CIALIS [Concomitant]
     Route: 065
  6. COREG [Concomitant]
     Route: 065
  7. DIGOXIN [Concomitant]
     Route: 065
  8. ENALAPRIL [Concomitant]
     Route: 065
  9. FLONASE [Concomitant]
     Route: 065
  10. LASIX [Concomitant]
     Route: 065
  11. ZANTAC [Concomitant]
     Route: 065

REACTIONS (2)
  - Basal ganglia haemorrhage [Unknown]
  - Haemorrhagic stroke [Recovered/Resolved]
